FAERS Safety Report 6346939-1 (Version None)
Quarter: 2009Q3

REPORT INFORMATION
  Report Type: 
  Country: None (occurrence: None)
  Receive Date: 20090910
  Receipt Date: 20070517
  Transmission Date: 20100115
  Serious: Yes (Hospitalization, Other)
  Sender: FDA-Public Use
  Company Number: US-ASTRAZENECA-2006UW23491

PATIENT
  Age: 39 Year
  Sex: Female
  Weight: 85.3 kg

DRUGS (32)
  1. SEROQUEL [Suspect]
     Indication: MENTAL DISORDER
     Dosage: 25-300 MG
     Route: 048
     Dates: start: 19981214
  2. SEROQUEL [Suspect]
     Indication: ANXIETY
     Dosage: 25-300 MG
     Route: 048
     Dates: start: 19981214
  3. SEROQUEL [Suspect]
     Indication: AGITATION
     Dosage: 25-300 MG
     Route: 048
     Dates: start: 19981214
  4. SEROQUEL [Suspect]
     Dosage: 50 TO 100 MG
     Route: 048
     Dates: start: 20050101
  5. SEROQUEL [Suspect]
     Dosage: 50 TO 100 MG
     Route: 048
     Dates: start: 20050101
  6. SEROQUEL [Suspect]
     Dosage: 50 TO 100 MG
     Route: 048
     Dates: start: 20050101
  7. ABILIFY [Concomitant]
     Dosage: 15-30 MG
     Dates: start: 20030915
  8. CLOZARIL [Concomitant]
  9. GEODON [Concomitant]
     Dates: start: 20060105
  10. HALDOL [Concomitant]
  11. NAVANE [Concomitant]
  12. RISPERDAL [Concomitant]
  13. STELAZINE [Concomitant]
  14. THORAZINE [Concomitant]
  15. ZYPREXA [Concomitant]
  16. MARIJUANA [Concomitant]
  17. METH [Concomitant]
  18. EFFEXOR [Concomitant]
     Dosage: 37.5-300 MG
     Dates: start: 19981022
  19. PROTONIX [Concomitant]
     Dates: start: 20010708
  20. ESTRACE [Concomitant]
     Dates: start: 19930729
  21. NPH INSULIN [Concomitant]
     Dosage: 10-38 UNITS
     Dates: start: 20050906
  22. REGULAR INSULIN [Concomitant]
     Dosage: 4 UNITS EVERY MORNING
     Dates: start: 20060105
  23. ALBUTEROL [Concomitant]
     Dosage: 2 PUFFS TWO TIMES A DAY
     Dates: start: 20010708
  24. AMBIEN [Concomitant]
     Dates: start: 20010708
  25. TRAZODONE [Concomitant]
     Dosage: 150-300 MG
     Dates: start: 20030915
  26. ADVAIR HFA [Concomitant]
     Dosage: 1 PUFF TWO TIMES A DAY
     Dates: start: 20030915
  27. KLONOPIN [Concomitant]
     Dosage: 0.25-1 MG
     Dates: start: 19990207
  28. AMARYL [Concomitant]
     Dates: start: 19990112
  29. COLACE [Concomitant]
     Dosage: EACH AM
     Dates: start: 19960809
  30. LEXAPRO [Concomitant]
     Dates: start: 20030915
  31. PERCOCET [Concomitant]
     Dosage: 5/325 1 TO 2 EVERY 6 HOURS
     Dates: start: 20030915
  32. PREMARIN [Concomitant]
     Route: 048
     Dates: start: 20010708

REACTIONS (27)
  - ANXIETY DISORDER [None]
  - BORDERLINE PERSONALITY DISORDER [None]
  - CONFUSIONAL STATE [None]
  - DEPRESSION [None]
  - DEPRESSION SUICIDAL [None]
  - DIABETES MELLITUS [None]
  - DIABETES MELLITUS INADEQUATE CONTROL [None]
  - DISSOCIATIVE IDENTITY DISORDER [None]
  - HALLUCINATION, AUDITORY [None]
  - HALLUCINATION, OLFACTORY [None]
  - HALLUCINATION, VISUAL [None]
  - HOMICIDAL IDEATION [None]
  - INSOMNIA [None]
  - INSULIN-REQUIRING TYPE 2 DIABETES MELLITUS [None]
  - MAJOR DEPRESSION [None]
  - MENTAL DISORDER [None]
  - MULTIPLE DRUG OVERDOSE [None]
  - PANCREATITIS [None]
  - PANIC ATTACK [None]
  - PANIC DISORDER [None]
  - POST-TRAUMATIC STRESS DISORDER [None]
  - SCHIZOAFFECTIVE DISORDER BIPOLAR TYPE [None]
  - SCHIZOAFFECTIVE DISORDER DEPRESSIVE TYPE [None]
  - SUICIDAL IDEATION [None]
  - TACHYPHRENIA [None]
  - TYPE 1 DIABETES MELLITUS [None]
  - TYPE 2 DIABETES MELLITUS [None]
